FAERS Safety Report 5503964-8 (Version None)
Quarter: 2007Q4

REPORT INFORMATION
  Report Type: 
  Country: None (occurrence: None)
  Receive Date: 20071030
  Receipt Date: 20071030
  Transmission Date: 20080405
  Serious: Yes (Hospitalization)
  Sender: FDA-Public Use
  Company Number: None

PATIENT
  Age: 55 Year
  Sex: Male
  Weight: 84 kg

DRUGS (11)
  1. TEMOZOLOMIDE [Suspect]
     Indication: GLIOBLASTOMA MULTIFORME
     Dosage: 50MG/M2 PO DAILY
     Route: 048
     Dates: start: 20070829, end: 20070925
  2. BEVACIZUMAB (GENENTECH) [Suspect]
     Indication: GLIOBLASTOMA MULTIFORME
     Dosage: 10MG/KG IV EVERY 2 WEEK
     Route: 042
     Dates: start: 20070829
  3. KEPPRA [Concomitant]
  4. DILANTIN [Concomitant]
  5. DECADRON [Concomitant]
  6. HYDROCHLOROTHIAZIDE [Concomitant]
  7. ZANTAC [Concomitant]
  8. MINOCYCLINE HCL [Concomitant]
  9. LIPITOR [Concomitant]
  10. ATIVAN [Concomitant]
  11. OXYCODONE HCL [Concomitant]

REACTIONS (6)
  - COGNITIVE DISORDER [None]
  - CONVULSION [None]
  - HEMIPARESIS [None]
  - MENTAL STATUS CHANGES [None]
  - NEOPLASM PROGRESSION [None]
  - NERVOUS SYSTEM DISORDER [None]
